FAERS Safety Report 5945992-4 (Version None)
Quarter: 2008Q4

REPORT INFORMATION
  Report Type: 
  Country: None (occurrence: None)
  Receive Date: 20081107
  Receipt Date: 20081107
  Transmission Date: 20090506
  Serious: No
  Sender: FDA-Public Use
  Company Number: None

PATIENT
  Sex: Male
  Weight: 89.8122 kg

DRUGS (1)
  1. ZESTORETIC [Suspect]
     Indication: HYPERTENSION
     Dosage: 20-12.5MG 1 TAB QD PO
     Route: 048
     Dates: start: 20060601

REACTIONS (2)
  - BLOOD PRESSURE DIASTOLIC INCREASED [None]
  - THERAPEUTIC RESPONSE UNEXPECTED WITH DRUG SUBSTITUTION [None]
